FAERS Safety Report 6442966-4 (Version None)
Quarter: 2009Q4

REPORT INFORMATION
  Report Type: 
  Country: None (occurrence: None)
  Receive Date: 20091117
  Receipt Date: 20091111
  Transmission Date: 20100525
  Serious: No
  Sender: FDA-Public Use
  Company Number: US-B.I. PHARMACEUTICALS,INC./RIDGEFIELD-2009-BP-12534BP

PATIENT
  Age: 54 Year
  Sex: Female

DRUGS (11)
  1. SPIRIVA [Suspect]
     Indication: CHRONIC OBSTRUCTIVE PULMONARY DISEASE
     Dosage: 18 MCG
     Route: 055
  2. SIMVASTATIN [Concomitant]
     Dosage: 40 MG
  3. OMEPRAZOLE [Concomitant]
     Dosage: 20 MG
  4. FLOVENT [Concomitant]
     Dosage: 4 PUF
  5. SEREVENT [Concomitant]
     Dosage: 4 PUF
  6. METFORMIN HCL [Concomitant]
     Dosage: 1500 MG
  7. GLYBURIDE [Concomitant]
  8. ALBUTEROL [Concomitant]
  9. PRO-AIR [Concomitant]
  10. FLONASE [Concomitant]
  11. SINGULAIR [Concomitant]
     Dosage: 10 MG

REACTIONS (6)
  - CHEST DISCOMFORT [None]
  - COUGH [None]
  - DYSPNOEA EXERTIONAL [None]
  - HEADACHE [None]
  - THROAT IRRITATION [None]
  - WHEEZING [None]
